FAERS Safety Report 7615711-4 (Version None)
Quarter: 2011Q3

REPORT INFORMATION
  Report Type: 
  Country: None (occurrence: None)
  Receive Date: 20110711
  Receipt Date: 20110214
  Transmission Date: 20111222
  Serious: Yes (Hospitalization)
  Sender: FDA-Public Use
  Company Number: 2011MA008342

PATIENT
  Age: 28 Year
  Sex: Female

DRUGS (6)
  1. CHLORPROMAZINE [Suspect]
     Indication: SCHIZOAFFECTIVE DISORDER
     Dosage: 25 MG
     Dates: start: 20101109, end: 20101123
  2. IBUPROFEN [Suspect]
     Dosage: 400 MG;TID
     Dates: start: 20101107
  3. IMPLANON [Suspect]
     Indication: CONTRACEPTION
  4. PENICILLIN [Concomitant]
  5. RISPERIDONE [Suspect]
     Indication: SCHIZOAFFECTIVE DISORDER
     Dosage: 25 MG;QOW;IM
     Route: 030
     Dates: start: 20101125
  6. SEROQUEL [Concomitant]

REACTIONS (1)
  - ANAPHYLACTIC REACTION [None]
